FAERS Safety Report 4625895-8 (Version None)
Quarter: 2005Q1

REPORT INFORMATION
  Report Type: 
  Country: None (occurrence: None)
  Receive Date: 20050330
  Receipt Date: 20050321
  Transmission Date: 20050727
  Serious: Yes (Hospitalization)
  Sender: FDA-Public Use
  Company Number: US-2005-001605

PATIENT
  Age: 48 Year
  Sex: Male

DRUGS (1)
  1. BETASERON [Suspect]
     Indication: SECONDARY PROGRESSIVE MULTIPLE SCLEROSIS
     Dosage: 8 MIU, EVERY 2D, SUBCUTANEOUS
     Route: 058
     Dates: start: 20041001, end: 20050118

REACTIONS (3)
  - ASPIRATION [None]
  - OROPHARYNGEAL SWELLING [None]
  - RECTAL HAEMORRHAGE [None]
